FAERS Safety Report 5304393-2 (Version None)
Quarter: 2007Q2

REPORT INFORMATION
  Report Type: 
  Country: None (occurrence: None)
  Receive Date: 20070423
  Receipt Date: 20070418
  Transmission Date: 20071010
  Serious: Yes (Other)
  Sender: FDA-Public Use
  Company Number: JP-AVENTIS-200711035JP

PATIENT
  Age: 79 Year
  Sex: Male

DRUGS (7)
  1. RILUTEK [Suspect]
     Indication: AMYOTROPHIC LATERAL SCLEROSIS
     Dosage: ROUTE: GASTROSTOMY TUBE
     Route: 050
     Dates: start: 20060704, end: 20061220
  2. TANATRIL [Concomitant]
     Indication: HYPERTENSION
     Dosage: ROUTE: GASTROSTOMY TUBE
     Route: 050
     Dates: start: 20060704, end: 20061220
  3. ALESION [Concomitant]
     Indication: RHINITIS
     Dosage: ROUTE: GASTROSTOMY TUBE
     Route: 050
     Dates: start: 20060704, end: 20061220
  4. MUCODYNE [Concomitant]
     Dosage: ROUTE: GASTROSTOMY TUBE
     Route: 050
     Dates: start: 20060704, end: 20061220
  5. PROMAC                             /01312301/ [Concomitant]
     Dosage: ROUTE: GASTROSTOMY TUBE
     Route: 050
     Dates: start: 20061206, end: 20061220
  6. HARNAL [Concomitant]
     Dosage: ROUTE: GASTROSTOMY TUBE
     Route: 050
     Dates: start: 20061218, end: 20061220
  7. ENSURE                             /00472201/ [Concomitant]

REACTIONS (1)
  - FEMUR FRACTURE [None]
